FAERS Safety Report 5001623-1 (Version None)
Quarter: 2006Q2

REPORT INFORMATION
  Report Type: 
  Country: None (occurrence: None)
  Receive Date: 20060511
  Receipt Date: 20060511
  Transmission Date: 20061013
  Serious: Yes (Hospitalization)
  Sender: FDA-Public Use
  Company Number: None

PATIENT
  Sex: Female
  Weight: 68 kg

DRUGS (4)
  1. TINZAPARIN [Suspect]
     Indication: GLIOBLASTOMA MULTIFORME
     Dosage: 4500IU QD SC
     Route: 058
     Dates: start: 20060506, end: 20060508
  2. TINZAPARIN [Suspect]
     Indication: THROMBOSIS PROPHYLAXIS
     Dosage: 4500IU QD SC
     Route: 058
     Dates: start: 20060506, end: 20060508
  3. IRINOTECAN HCL [Concomitant]
  4. TEMODAR [Concomitant]

REACTIONS (9)
  - CANDIDIASIS [None]
  - HAEMATOCRIT DECREASED [None]
  - HAEMOGLOBIN DECREASED [None]
  - HYPOGLYCAEMIA [None]
  - PLATELET COUNT DECREASED [None]
  - PYREXIA [None]
  - VISION BLURRED [None]
  - WEIGHT DECREASED [None]
  - WHITE BLOOD CELL COUNT DECREASED [None]
